FAERS Safety Report 8599704-9 (Version None)
Quarter: 2012Q3

REPORT INFORMATION
  Report Type: 
  Country: None (occurrence: None)
  Receive Date: 20120816
  Receipt Date: 20120813
  Transmission Date: 20120928
  Serious: Yes (Death, Hospitalization, Other)
  Sender: FDA-Public Use
  Company Number: US-CELGENEUS-163-21880-12050923

PATIENT
  Sex: Male

DRUGS (35)
  1. CARAFATE [Concomitant]
     Dosage: 4 GRAM
     Route: 048
  2. LISINOPRIL [Concomitant]
     Route: 065
  3. MORPHINE [Concomitant]
     Indication: BREAKTHROUGH PAIN
     Dosage: 60 MILLIGRAM
     Route: 048
     Dates: start: 20120426
  4. MORPHINE [Concomitant]
     Dosage: 7.5-15MG
     Route: 048
  5. MORPHINE [Concomitant]
     Dosage: BASAL
     Route: 065
  6. MORPHINE [Concomitant]
     Dosage: 30 MILLIGRAM
     Route: 048
     Dates: start: 20120501
  7. XYLOXYLIN [Concomitant]
     Dosage: 300 MILLIGRAM
     Route: 065
  8. VANCOMYCIN [Concomitant]
     Route: 041
     Dates: start: 20120401
  9. FAMOTIDINE [Concomitant]
     Indication: CHEST PAIN
  10. MOXIFLOXACIN [Concomitant]
     Dosage: 400 MILLIGRAM
     Route: 048
     Dates: end: 20120501
  11. DEXAMETHASONE [Concomitant]
     Route: 041
  12. FLUIDS [Concomitant]
     Route: 041
  13. MIRALAX [Concomitant]
     Dosage: 34 GRAM
     Route: 048
  14. MORPHINE [Concomitant]
     Dosage: 15 MILLIGRAM
     Route: 048
  15. REGLAN [Concomitant]
     Indication: NAUSEA
     Dosage: 60 MILLIGRAM
     Route: 048
  16. SENOKOT [Concomitant]
     Dosage: 6 TABLET
     Route: 048
  17. VASOPRESSORS [Concomitant]
     Route: 065
  18. PLATELETS [Concomitant]
     Indication: TRANSFUSION
     Dosage: 6 UNITS
     Route: 041
     Dates: start: 20120502
  19. DEXAMETHASONE [Concomitant]
     Dosage: 4 MILLIGRAM
     Route: 065
  20. IPRATROPIUM BROMIDE [Concomitant]
     Route: 055
  21. PROTONIX [Concomitant]
     Dosage: 40 MILLIGRAM
     Route: 048
  22. TESSALON [Concomitant]
     Dosage: 600 MILLIGRAM
     Route: 048
  23. REVLIMID [Suspect]
     Dosage: 15 MILLIGRAM
     Route: 048
     Dates: start: 20111101
  24. OXYGEN [Concomitant]
     Route: 045
  25. AMIODARONE [Concomitant]
     Dosage: 200 MILLIGRAM
     Route: 065
  26. HALDOL [Concomitant]
     Dosage: 2 MILLIGRAM
     Route: 048
  27. MORPHINE [Concomitant]
     Dosage: 2 MILLIGRAM
     Route: 065
  28. ALBUTEROL [Concomitant]
     Route: 055
  29. AMIODARONE [Concomitant]
     Indication: ATRIAL FIBRILLATION
     Dosage: 400 MILLIGRAM
     Route: 041
     Dates: end: 20120508
  30. PEPCID [Concomitant]
     Dosage: 20 MILLIGRAM
     Route: 048
  31. DEXAMETHASONE [Concomitant]
     Indication: SPINAL CORD COMPRESSION
     Dosage: 8 MILLIGRAM
     Route: 048
  32. METOPROLOL TARTRATE [Concomitant]
     Dosage: 75 MILLIGRAM
     Route: 048
  33. MERREM [Concomitant]
     Route: 041
     Dates: start: 20120401
  34. TOBRAMYCIN [Concomitant]
     Route: 041
     Dates: start: 20120401
  35. SOTALOL HCL [Concomitant]
     Route: 065

REACTIONS (4)
  - PNEUMONIA [None]
  - ATRIAL FIBRILLATION [None]
  - NON-HODGKIN'S LYMPHOMA [None]
  - SEPSIS [None]
